FAERS Safety Report 5597045-5 (Version None)
Quarter: 2008Q1

REPORT INFORMATION
  Report Type: 
  Country: None (occurrence: None)
  Receive Date: 20080121
  Receipt Date: 20080116
  Transmission Date: 20080703
  Serious: Yes (Hospitalization, Other)
  Sender: FDA-Public Use
  Company Number: FR-ABBOTT-07P-056-0425627-00

PATIENT
  Sex: Female

DRUGS (7)
  1. SEVORANE [Suspect]
     Indication: DRUG USE FOR UNKNOWN INDICATION
     Route: 055
     Dates: start: 20070710, end: 20070710
  2. PATENT BLUE [Suspect]
     Indication: DRUG USE FOR UNKNOWN INDICATION
     Route: 063
     Dates: start: 20070710, end: 20070710
  3. PROPRANOLOL [Concomitant]
     Indication: DRUG USE FOR UNKNOWN INDICATION
  4. SPIRONOLACTONE [Concomitant]
     Indication: DRUG USE FOR UNKNOWN INDICATION
  5. PROPOFOL [Concomitant]
     Indication: DRUG USE FOR UNKNOWN INDICATION
     Route: 042
     Dates: start: 20070710, end: 20070710
  6. ALFENTANIL [Concomitant]
     Indication: DRUG USE FOR UNKNOWN INDICATION
     Route: 042
     Dates: start: 20070710, end: 20070710
  7. CEFUROXIME [Concomitant]
     Indication: DRUG USE FOR UNKNOWN INDICATION
     Route: 042
     Dates: start: 20070710, end: 20070710

REACTIONS (3)
  - AMNESIA [None]
  - ANAPHYLACTIC SHOCK [None]
  - RESUSCITATION [None]
